FAERS Safety Report 21060890 (Version 2)
Quarter: 2022Q3

REPORT INFORMATION
  Report Type: Spontaneous
  Country: CA (occurrence: CA)
  Receive Date: 20220709
  Receipt Date: 20220818
  Transmission Date: 20221026
  Serious: Yes (Other)
  Sender: FDA-Public Use
  Company Number: CA-CELLTRION INC.-2021CA017934

PATIENT

DRUGS (9)
  1. INFLECTRA [Suspect]
     Active Substance: INFLIXIMAB-DYYB
     Indication: Colitis ulcerative
     Dosage: 10 MG/KG (600 MG) (WEEK 0, 2, THEN EVERY 6 WEEKS)
     Route: 042
     Dates: start: 20211109, end: 20211109
  2. INFLECTRA [Suspect]
     Active Substance: INFLIXIMAB-DYYB
     Dosage: 10 MG/KG (600 MG) (WEEK 0, 2, THEN EVERY 6 WEEKS)
     Route: 042
     Dates: start: 20211122, end: 20211122
  3. INFLECTRA [Suspect]
     Active Substance: INFLIXIMAB-DYYB
     Dosage: 10 MG/KG (WEEK 0, 2, THEN EVERY 6 WEEKS)
     Route: 042
     Dates: start: 20211217, end: 20211217
  4. INFLECTRA [Suspect]
     Active Substance: INFLIXIMAB-DYYB
     Dosage: 10 MG/KG (600 MG) (WEEK 0, 2, THEN EVERY 6 WEEKS)
     Route: 042
     Dates: start: 20220128, end: 20220128
  5. INFLECTRA [Suspect]
     Active Substance: INFLIXIMAB-DYYB
     Dosage: 600 MG (WEEK 0, 2, THEN EVERY 6 WEEKS)
     Route: 042
     Dates: start: 20220308, end: 20220308
  6. INFLECTRA [Suspect]
     Active Substance: INFLIXIMAB-DYYB
     Dosage: 600 MG (WEEK 0, 2, THEN EVERY 6 WEEKS)
     Route: 042
     Dates: start: 20220420, end: 20220420
  7. INFLECTRA [Suspect]
     Active Substance: INFLIXIMAB-DYYB
     Dosage: 600 MG (WEEK 0, 2, THEN EVERY 6 WEEKS)
     Route: 042
     Dates: start: 20220603, end: 20220603
  8. INFLECTRA [Suspect]
     Active Substance: INFLIXIMAB-DYYB
     Dosage: 600 MG (RESCUE DOSE)
     Route: 042
     Dates: start: 20220628, end: 20220628
  9. PREDNISONE [Concomitant]
     Active Substance: PREDNISONE
     Dosage: 1 DF

REACTIONS (5)
  - Colitis ulcerative [Not Recovered/Not Resolved]
  - Condition aggravated [Not Recovered/Not Resolved]
  - Therapeutic response shortened [Unknown]
  - Off label use [Unknown]
  - Intentional product use issue [Unknown]

NARRATIVE: CASE EVENT DATE: 20220101
